FAERS Safety Report 20446207 (Version 1)
Quarter: 2022Q1

REPORT INFORMATION
  Report Type: Spontaneous
  Country: FI (occurrence: FI)
  Receive Date: 20220208
  Receipt Date: 20220208
  Transmission Date: 20220423
  Serious: Yes (Hospitalization, Other)
  Sender: FDA-Public Use
  Company Number: FI-AMERICAN REGENT INC-2022000294

PATIENT
  Age: 33 Year
  Sex: Female

DRUGS (1)
  1. FERINJECT [Suspect]
     Active Substance: FERRIC CARBOXYMALTOSE
     Indication: Product used for unknown indication
     Dosage: 1000 MG X1 (1000 MG, 1 ONCE)
     Route: 042
     Dates: start: 20220104, end: 20220104

REACTIONS (6)
  - Feeling of body temperature change [Recovered/Resolved]
  - Sensation of foreign body [Recovered/Resolved]
  - Maternal exposure during pregnancy [Unknown]
  - Erythema [Recovered/Resolved]
  - Blood pressure increased [Recovered/Resolved]
  - Dizziness [Recovered/Resolved]

NARRATIVE: CASE EVENT DATE: 20220104
